FAERS Safety Report 10403261 (Version 2)
Quarter: 2014Q3

REPORT INFORMATION
  Report Type: Spontaneous
  Country: JP (occurrence: JP)
  Receive Date: 20140822
  Receipt Date: 20140828
  Transmission Date: 20150326
  Serious: Yes (Other)
  Sender: FDA-Public Use
  Company Number: JP-PFIZER INC-2014231847

PATIENT
  Age: 8 Decade
  Sex: Female

DRUGS (5)
  1. CEFZON [Suspect]
     Active Substance: CEFDINIR
     Indication: GINGIVAL ABSCESS
     Dosage: 300 MG, DAILY
     Route: 048
     Dates: start: 20140812, end: 20140816
  2. CADUET [Suspect]
     Active Substance: AMLODIPINE BESYLATE\ATORVASTATIN CALCIUM
     Dosage: UNK
     Route: 048
  3. GASLON [Concomitant]
     Active Substance: IRSOGLADINE MALEATE
     Dosage: UNK
     Route: 048
  4. PROTECADIN [Concomitant]
     Active Substance: LAFUTIDINE
     Dosage: UNK
     Route: 048
  5. BIOFERMIN [Concomitant]
     Active Substance: BACILLUS SUBTILIS\LACTOBACILLUS ACIDOPHILUS\STREPTOCOCCUS FAECAIS
     Dosage: UNK
     Route: 048

REACTIONS (1)
  - Haematochezia [Recovered/Resolved]

NARRATIVE: CASE EVENT DATE: 20140813
